FAERS Safety Report 6005054-7 (Version None)
Quarter: 2008Q4

REPORT INFORMATION
  Report Type: 
  Country: None (occurrence: None)
  Receive Date: 20081216
  Receipt Date: 20081208
  Transmission Date: 20090506
  Serious: Yes (Other)
  Sender: FDA-Public Use
  Company Number: PHHY2008JP28122

PATIENT
  Sex: Male
  Weight: 87 kg

DRUGS (4)
  1. DIOVAN [Suspect]
     Indication: HYPERTENSION
     Dosage: 40 MG, QD
     Route: 048
     Dates: start: 20080710, end: 20080812
  2. DIOVAN [Suspect]
     Dosage: 80 MG, QD
     Route: 048
     Dates: start: 20080813
  3. ADALAT CC [Concomitant]
     Dosage: 20 MG, UNK
     Route: 048
     Dates: start: 20080912
  4. TRICOR [Concomitant]
     Dosage: 100 MG
     Route: 048
     Dates: start: 20080816

REACTIONS (2)
  - BLOOD PRESSURE INCREASED [None]
  - DYSLIPIDAEMIA [None]
